FAERS Safety Report 8908665 (Version 1)
Quarter: 2012Q4

REPORT INFORMATION
  Report Type: 
  Country: JP (occurrence: JP)
  Receive Date: 20121114
  Receipt Date: 20121114
  Transmission Date: 20130627
  Serious: Yes (Other)
  Sender: FDA-Public Use
  Company Number: PHHY2012JP104838

PATIENT

DRUGS (2)
  1. COMTAN [Suspect]
     Dosage: UNK UKN, UNK
     Route: 048
  2. BENZODIAZEPINE DERIVATIVES [Interacting]
     Dosage: UNK UKN, UNK
     Route: 048

REACTIONS (2)
  - Drug interaction [Unknown]
  - Somnolence [Unknown]
